FAERS Safety Report 10264906 (Version 1)
Quarter: 2014Q2

REPORT INFORMATION
  Report Type: Spontaneous
  Country: US (occurrence: US)
  Receive Date: 20140627
  Receipt Date: 20140627
  Transmission Date: 20141212
  Serious: Yes (Other)
  Sender: FDA-Public Use
  Company Number: US-BAYER-2014-094188

PATIENT
  Age: 61 Year
  Sex: Female
  Weight: 52.15 kg

DRUGS (3)
  1. BAYER GENUINE ASPIRIN ORIGINAL STRENGTH [Suspect]
  2. ALEVE CAPLET [Suspect]
  3. ADVIL [Suspect]

REACTIONS (2)
  - Haemorrhage [Unknown]
  - Drug hypersensitivity [Unknown]
